FAERS Safety Report 10067407 (Version 1)
Quarter: 2014Q2

REPORT INFORMATION
  Report Type: Spontaneous
  Country: US (occurrence: None)
  Receive Date: 20140407
  Receipt Date: 20140407
  Transmission Date: 20141212
  Serious: Yes (Other)
  Sender: FDA-Public Use
  Company Number: 2014-US-003853

PATIENT
  Sex: Female

DRUGS (6)
  1. XYREM [Suspect]
     Indication: SLEEP DISORDER
     Route: 048
     Dates: start: 200610
  2. PROGESTERONE (PROGESTERONE) [Concomitant]
  3. NAPROXEN (NAPROXEN) [Concomitant]
  4. CYMBALTA [Concomitant]
  5. PROVIGIL (MODAFINIL) [Concomitant]
  6. VICODIN (HYDROCODONE BITARTRATE, PARACETAMOL) [Concomitant]

REACTIONS (3)
  - Sleep apnoea syndrome [None]
  - Fibromyalgia [None]
  - Off label use [None]
